FAERS Safety Report 14586762 (Version 2)
Quarter: 2018Q2

REPORT INFORMATION
  Report Type: Spontaneous
  Country: US (occurrence: US)
  Receive Date: 20180301
  Receipt Date: 20180427
  Transmission Date: 20180711
  Serious: Yes (Hospitalization, Other)
  Sender: FDA-Public Use
  Company Number: US-BECTON DICKINSON-2018BDN00035

PATIENT
  Sex: Female

DRUGS (1)
  1. CHLORAPREP WITH TINT [Suspect]
     Active Substance: CHLORHEXIDINE GLUCONATE\ISOPROPYL ALCOHOL
     Indication: INFECTION PROPHYLAXIS
     Dosage: UNK
     Route: 061
     Dates: start: 20180105, end: 20180105

REACTIONS (2)
  - Thermal burn [Unknown]
  - Product caught fire [Unknown]

NARRATIVE: CASE EVENT DATE: 20180105
